FAERS Safety Report 9167995 (Version 1)
Quarter: 2013Q1

REPORT INFORMATION
  Report Type: Spontaneous
  Country: US (occurrence: US)
  Receive Date: 20130318
  Receipt Date: 20130318
  Transmission Date: 20140127
  Serious: Yes (Death, Hospitalization)
  Sender: FDA-Public Use
  Company Number: US-ELI_LILLY_AND_COMPANY-US201303003827

PATIENT
  Age: 50 Year
  Sex: Female

DRUGS (2)
  1. HUMULIN REGULAR [Suspect]
     Dosage: UNK, PRN
     Route: 058
  2. HUMULIN REGULAR [Suspect]
     Dosage: 200 U, SINGLE
     Route: 058
     Dates: start: 20110222

REACTIONS (5)
  - Cardiac failure [Fatal]
  - Loss of consciousness [Unknown]
  - Blood glucose decreased [Unknown]
  - Dyspnoea [Unknown]
  - Incorrect dose administered [Unknown]
